FAERS Safety Report 7395217-0 (Version None)
Quarter: 2011Q2

REPORT INFORMATION
  Report Type: 
  Country: None (occurrence: None)
  Receive Date: 20110405
  Receipt Date: 20091122
  Transmission Date: 20111010
  Serious: Yes (Death, Other)
  Sender: FDA-Public Use
  Company Number: US-BAYER-200940332NA

PATIENT
  Sex: Female
  Weight: 84 kg

DRUGS (15)
  1. LOTENSIN [Concomitant]
     Dosage: 20 MG, UNK
     Route: 048
     Dates: start: 19980116
  2. VERSED [Concomitant]
     Dosage: 30 MG, UNK
     Route: 042
     Dates: start: 20001003, end: 20001003
  3. DOPAMINE [Concomitant]
     Dosage: 24 CC
     Route: 042
     Dates: start: 20001003
  4. COUMADIN [Concomitant]
     Dosage: 5 UNK, UNK
     Route: 048
     Dates: start: 20000918, end: 20000928
  5. DYAZIDE [Concomitant]
     Dosage: 37.5/25MG
     Route: 048
     Dates: start: 19980812
  6. NITROGLYCERIN [Concomitant]
     Dosage: 0.4 MG, UNK
     Route: 060
     Dates: start: 19950905
  7. TRASYLOL [Suspect]
     Indication: CORONARY ARTERY BYPASS
     Dosage: 200ML, FOLLOWED BY 50CC/HR
     Route: 042
     Dates: start: 20001003, end: 20001003
  8. NADOLOL [Concomitant]
     Dosage: 20 MG, UNK
     Route: 048
     Dates: start: 19950915
  9. CARDIZEM CD [Concomitant]
     Dosage: 180 MG, UNK
     Route: 048
     Dates: start: 19950921
  10. DIGOXIN [Concomitant]
     Dosage: 0.5MGX2
     Route: 042
     Dates: start: 20001003, end: 20001003
  11. NITROGLYCERIN [Concomitant]
     Dosage: 30CC/HR
     Dates: start: 20001003
  12. LASIX [Concomitant]
     Dosage: 20 MG, UNK
     Dates: start: 20001003, end: 20001003
  13. HEPARIN SODIUM [Concomitant]
     Dosage: 2600 U, UNK
     Route: 042
     Dates: start: 20001003, end: 20001003
  14. TRASYLOL [Suspect]
     Indication: MITRAL VALVE REPLACEMENT
     Dosage: 1ML, INITIAL TEST DOSE
  15. TRASYLOL [Suspect]
     Indication: AORTIC VALVE REPLACEMENT

REACTIONS (13)
  - RENAL FAILURE [None]
  - FEAR [None]
  - ANHEDONIA [None]
  - MULTI-ORGAN FAILURE [None]
  - RENAL IMPAIRMENT [None]
  - EMOTIONAL DISTRESS [None]
  - STRESS [None]
  - PAIN [None]
  - RENAL INJURY [None]
  - DEATH [None]
  - INJURY [None]
  - ANXIETY [None]
  - UNEVALUABLE EVENT [None]
